FAERS Safety Report 12517629 (Version 3)
Quarter: 2016Q4

REPORT INFORMATION
  Report Type: Report from Study
  Country: BR (occurrence: BR)
  Receive Date: 20160630
  Receipt Date: 20161028
  Transmission Date: 20170207
  Serious: Yes (Life-Threatening, Other)
  Sender: FDA-Public Use
  Company Number: PHHY2016BR089410

PATIENT
  Sex: Female
  Weight: 62 kg

DRUGS (1)
  1. SANDOSTATIN LAR DEPOT [Suspect]
     Active Substance: OCTREOTIDE ACETATE
     Indication: ACROMEGALY
     Dosage: 1 DF (20 MG), EVERY 6 WEEKS
     Route: 030
     Dates: start: 2001

REACTIONS (12)
  - Coma [Unknown]
  - Weight decreased [Unknown]
  - Chronic kidney disease [Unknown]
  - Hypertension [Unknown]
  - Leukaemia [Unknown]
  - Cataract [Unknown]
  - Meningitis [Recovered/Resolved with Sequelae]
  - Deafness unilateral [Not Recovered/Not Resolved]
  - Swelling [Unknown]
  - Inappropriate schedule of drug administration [Unknown]
  - Plasma cell myeloma [Unknown]
  - Memory impairment [Not Recovered/Not Resolved]
